FAERS Safety Report 13696568 (Version 6)
Quarter: 2018Q4

REPORT INFORMATION
  Report Type: Report from Study
  Country: DE (occurrence: DE)
  Receive Date: 20170628
  Receipt Date: 20181129
  Transmission Date: 20190204
  Serious: Yes (Death, Hospitalization)
  Sender: FDA-Public Use
  Company Number: PHHO2017DE009438

PATIENT
  Age: 60 Year
  Sex: Female
  Weight: 63 kg

DRUGS (5)
  1. LEE011 [Suspect]
     Active Substance: RIBOCICLIB
     Indication: BREAST CANCER
     Dosage: 600 MG, UNK
     Route: 048
     Dates: start: 20170321, end: 20170529
  2. NOVAMINSULFON [Concomitant]
     Active Substance: METAMIZOLE
     Indication: BONE PAIN
     Dosage: 1 DF, BID
     Route: 048
     Dates: start: 2015
  3. CGS 20267 [Suspect]
     Active Substance: LETROZOLE
     Indication: BREAST CANCER
     Dosage: 2.5 MG, UNK
     Route: 048
     Dates: start: 20170321, end: 20170612
  4. BONDRONAT [Concomitant]
     Active Substance: IBANDRONATE SODIUM
     Indication: OSTEOPOROSIS PROPHYLAXIS
     Dosage: 6 MG, EVERY THIRD WEEK
     Route: 042
     Dates: start: 20140212
  5. FENTANYL TRANSDERMAL SYSTEM [Concomitant]
     Active Substance: FENTANYL
     Indication: BONE PAIN
     Dosage: 4125 PATCH, EVERY THIRD DAY
     Route: 062
     Dates: start: 2015

REACTIONS (3)
  - General physical health deterioration [Not Recovered/Not Resolved]
  - Cardiac failure [Fatal]
  - Jaw fracture [Recovering/Resolving]

NARRATIVE: CASE EVENT DATE: 20170608
